FAERS Safety Report 11923064 (Version 1)
Quarter: 2016Q1

REPORT INFORMATION
  Report Type: Report from Study
  Country: US (occurrence: US)
  Receive Date: 20160117
  Receipt Date: 20160117
  Transmission Date: 20160526
  Serious: No
  Sender: FDA-Public Use
  Company Number: US-AMGEN-USASL2016001144

PATIENT
  Age: 46 Year
  Sex: Female

DRUGS (1)
  1. ENBREL [Suspect]
     Active Substance: ETANERCEPT
     Indication: RHEUMATOID ARTHRITIS
     Dosage: 50 MG, WEEKLY
     Route: 065
     Dates: start: 201405, end: 20151202

REACTIONS (6)
  - Peripheral swelling [Unknown]
  - Influenza [Unknown]
  - Joint swelling [Unknown]
  - Bronchitis [Unknown]
  - Malaise [Unknown]
  - Drug ineffective [Unknown]
